FAERS Safety Report 9422200 (Version 1)
Quarter: 2013Q3

REPORT INFORMATION
  Report Type: Report from Study
  Country: FR (occurrence: FR)
  Receive Date: 20130726
  Receipt Date: 20130726
  Transmission Date: 20140515
  Serious: Yes (Death, Other)
  Sender: FDA-Public Use
  Company Number: FR-ROCHE-736784

PATIENT
  Sex: 0

DRUGS (1)
  1. RITUXIMAB [Suspect]
     Indication: VASCULITIS
     Route: 065

REACTIONS (5)
  - Sepsis [Fatal]
  - Cryptococcosis [Fatal]
  - Infection [Unknown]
  - Embolism [Unknown]
  - Hypogammaglobulinaemia [Unknown]
